FAERS Safety Report 11429184 (Version 1)
Quarter: 2015Q3

REPORT INFORMATION
  Report Type: Spontaneous
  Country: US (occurrence: US)
  Receive Date: 20150828
  Receipt Date: 20150828
  Transmission Date: 20151125
  Serious: No
  Sender: FDA-Public Use
  Company Number: US-ROCHE-1214077

PATIENT
  Age: 61 Year
  Sex: Male

DRUGS (3)
  1. TELAPREVIR [Suspect]
     Active Substance: TELAPREVIR
     Indication: CHRONIC HEPATITIS C
     Route: 065
     Dates: start: 20130401
  2. PEGASYS [Suspect]
     Active Substance: PEGINTERFERON ALFA-2A
     Indication: CHRONIC HEPATITIS C
     Route: 058
     Dates: start: 20130401
  3. RIBASPHERE [Suspect]
     Active Substance: RIBAVIRIN
     Indication: CHRONIC HEPATITIS C
     Dosage: INDIVIDED DOSE 600/600
     Route: 048
     Dates: start: 20130401

REACTIONS (10)
  - Nausea [Unknown]
  - Haemorrhoids [Unknown]
  - Oral discomfort [Unknown]
  - Ageusia [Unknown]
  - Diarrhoea [Unknown]
  - Fatigue [Unknown]
  - Pruritus generalised [Unknown]
  - Anxiety [Unknown]
  - Anorectal discomfort [Unknown]
  - Glossodynia [Unknown]

NARRATIVE: CASE EVENT DATE: 20130402
